FAERS Safety Report 9123156 (Version 2)
Quarter: 2013Q4

REPORT INFORMATION
  Report Type: Spontaneous
  Country: TR (occurrence: GB)
  Receive Date: 20130115
  Receipt Date: 20131122
  Transmission Date: 20140711
  Serious: Yes (Other)
  Sender: FDA-Public Use
  Company Number: GB-PFIZER INC-2013014654

PATIENT
  Sex: 0

DRUGS (1)
  1. PREGABALIN [Suspect]
     Indication: PROCEDURAL PAIN
     Dosage: 300 MG, UNK

REACTIONS (1)
  - Electrocardiogram ST segment elevation [Recovered/Resolved]
